FAERS Safety Report 20745881 (Version 11)
Quarter: 2023Q2

REPORT INFORMATION
  Report Type: Report from Study
  Country: AR (occurrence: AR)
  Receive Date: 20220425
  Receipt Date: 20230515
  Transmission Date: 20230721
  Serious: Yes (Hospitalization, Other)
  Sender: FDA-Public Use
  Company Number: AR-NOVARTISPH-NVSC2022AR026789

PATIENT
  Age: 57 Year
  Sex: Female

DRUGS (1)
  1. KISQALI [Suspect]
     Active Substance: RIBOCICLIB
     Indication: Breast cancer metastatic
     Dosage: 600 MG, QD (THROUGH THE MOUTH)
     Route: 048
     Dates: start: 20220118, end: 20230429

REACTIONS (15)
  - Cerebrovascular accident [Unknown]
  - Pleural effusion [Unknown]
  - Dyspnoea [Unknown]
  - Hepatitis C [Unknown]
  - Metastases to bone [Unknown]
  - Breast cancer metastatic [Unknown]
  - Malignant neoplasm progression [Unknown]
  - Discomfort [Unknown]
  - Movement disorder [Unknown]
  - Influenza [Unknown]
  - Conjunctivitis [Unknown]
  - Malaise [Unknown]
  - Peripheral swelling [Unknown]
  - Alopecia [Unknown]
  - Platelet count decreased [Unknown]

NARRATIVE: CASE EVENT DATE: 20220301
